FAERS Safety Report 20364519 (Version 2)
Quarter: 2022Q1

REPORT INFORMATION
  Report Type: Spontaneous
  Country: US (occurrence: US)
  Receive Date: 20220122
  Receipt Date: 20220211
  Transmission Date: 20220423
  Serious: No
  Sender: FDA-Public Use
  Company Number: US-EPICPHARMA-US-2022EPCSPO00074

PATIENT
  Age: 74 Year
  Sex: Male
  Weight: 180 kg

DRUGS (5)
  1. CHOLESTYRAMINE [Suspect]
     Active Substance: CHOLESTYRAMINE
     Indication: Blood cholesterol increased
     Dosage: 4 G  IN 9 G
     Route: 048
     Dates: end: 20220103
  2. CHOLESTYRAMINE [Suspect]
     Active Substance: CHOLESTYRAMINE
  3. CHOLESTYRAMINE [Suspect]
     Active Substance: CHOLESTYRAMINE
  4. LISINOPRIL [Concomitant]
     Active Substance: LISINOPRIL
     Indication: Product used for unknown indication
     Route: 065
  5. METFORMIN [Concomitant]
     Active Substance: METFORMIN HYDROCHLORIDE
     Indication: Product used for unknown indication
     Route: 065

REACTIONS (5)
  - Gastrointestinal sounds abnormal [Recovering/Resolving]
  - Dysgeusia [Recovering/Resolving]
  - Drug ineffective [Unknown]
  - Product solubility abnormal [Unknown]
  - Product taste abnormal [Unknown]

NARRATIVE: CASE EVENT DATE: 20210103
